FAERS Safety Report 9165926 (Version 1)
Quarter: 2013Q1

REPORT INFORMATION
  Report Type: Spontaneous
  Country: US (occurrence: US)
  Receive Date: 20130315
  Receipt Date: 20130315
  Transmission Date: 20140127
  Serious: Yes (Hospitalization, Other)
  Sender: FDA-Public Use
  Company Number: US-BAYER-2013-030603

PATIENT
  Age: 39 Year
  Sex: Female

DRUGS (6)
  1. YAZ [Suspect]
  2. BEYAZ [Suspect]
  3. ROBITUSSIN AC [CODEINE PHOSPHATE,GUAIFENESIN] [Concomitant]
     Route: 048
  4. CARAFATE [Concomitant]
     Route: 048
  5. IBUPROFEN [IBUPROFEN] [Concomitant]
  6. MACROBID [Concomitant]
     Indication: URINARY TRACT INFECTION

REACTIONS (2)
  - Pulmonary embolism [None]
  - Deep vein thrombosis [None]
